FAERS Safety Report 20804556 (Version 3)
Quarter: 2024Q3

REPORT INFORMATION
  Report Type: Report from Study
  Country: US (occurrence: US)
  Receive Date: 20220509
  Receipt Date: 20240830
  Transmission Date: 20241016
  Serious: Yes (Hospitalization, Other)
  Sender: TAKEDA
  Company Number: US-SHIRE-US201717507

PATIENT
  Sex: Male

DRUGS (2)
  1. HUMAN IMMUNOGLOBULIN G [Suspect]
     Active Substance: HUMAN IMMUNOGLOBULIN G
     Indication: Primary immunodeficiency syndrome
     Dosage: 12 GRAM, MONTHLY
     Route: 065
  2. HUMAN IMMUNOGLOBULIN G [Suspect]
     Active Substance: HUMAN IMMUNOGLOBULIN G
     Indication: Hypogammaglobulinaemia
     Dosage: 12 GRAM, MONTHLY
     Route: 058

REACTIONS (9)
  - Gastrointestinal infection [Unknown]
  - Pneumonia [Unknown]
  - Infusion site pain [Unknown]
  - Infusion site bruising [Unknown]
  - Infusion site swelling [Unknown]
  - Infusion site discolouration [Unknown]
  - COVID-19 [Recovering/Resolving]
  - Ear infection [Recovering/Resolving]
  - Inappropriate schedule of product administration [Unknown]
